FAERS Safety Report 9647411 (Version 1)
Quarter: 2013Q4

REPORT INFORMATION
  Report Type: Spontaneous
  Country: IE (occurrence: FR)
  Receive Date: 20131028
  Receipt Date: 20131028
  Transmission Date: 20140711
  Serious: Yes (Hospitalization)
  Sender: FDA-Public Use
  Company Number: 2013SP007450

PATIENT
  Age: 77 Year
  Sex: Male

DRUGS (16)
  1. VANCOMYCIN [Suspect]
     Indication: INTERVERTEBRAL DISCITIS
     Route: 042
     Dates: start: 20130725, end: 20130803
  2. MALARONE [Suspect]
     Indication: MALARIA
     Route: 048
     Dates: start: 20130801, end: 20130803
  3. MORPHINE SULFATE [Suspect]
     Indication: PRODUCT USED FOR UNKNOWN INDICATION
     Route: 048
     Dates: start: 20130801
  4. MORPHINE SULFATE [Suspect]
     Indication: PRODUCT USED FOR UNKNOWN INDICATION
     Route: 048
     Dates: start: 20130801
  5. MERONEM [Concomitant]
     Dates: start: 20130725
  6. PRIMPERAN [Concomitant]
     Dates: start: 20130801
  7. SODIUM CHLORIDE [Concomitant]
     Dates: start: 20130801
  8. POTASSIUM CHLORIDE [Concomitant]
     Dates: start: 20130801
  9. SODIUM BICARBONATE [Concomitant]
     Dates: start: 20130801
  10. POLYETHYLENE GLYCOL [Concomitant]
     Dates: start: 20130801
  11. SOLUMEDROL [Concomitant]
  12. HYDROCHLOROTHIAZIDE [Concomitant]
  13. IRBESARTAN [Concomitant]
  14. CARDENSIEL [Concomitant]
  15. DAFALGAN [Concomitant]
  16. LOVENOX [Concomitant]

REACTIONS (3)
  - Encephalopathy [Recovered/Resolved]
  - Hallucination [Recovered/Resolved]
  - Altered state of consciousness [Recovered/Resolved]
